FAERS Safety Report 8422792-7 (Version None)
Quarter: 2012Q2

REPORT INFORMATION
  Report Type: 
  Country: None (occurrence: None)
  Receive Date: 20120608
  Receipt Date: 20120605
  Transmission Date: 20120825
  Serious: Yes (Disabling, Other)
  Sender: FDA-Public Use
  Company Number: US-MERCK-1102USA02524

PATIENT
  Age: 50 Year
  Sex: Female
  Weight: 60 kg

DRUGS (3)
  1. PHENOBARBITAL [Concomitant]
     Indication: CONVULSION
     Route: 065
  2. FOSAMAX [Suspect]
     Indication: OSTEOPOROSIS
     Route: 048
     Dates: start: 19970301, end: 20010828
  3. FOSAMAX [Suspect]
     Route: 048
     Dates: start: 20010901, end: 20070328

REACTIONS (27)
  - LIGAMENT SPRAIN [None]
  - CONTUSION [None]
  - URINARY INCONTINENCE [None]
  - PULMONARY PNEUMATOCELE [None]
  - OESOPHAGITIS ULCERATIVE [None]
  - ODYNOPHAGIA [None]
  - GINGIVAL ABSCESS [None]
  - HAND FRACTURE [None]
  - TIBIA FRACTURE [None]
  - ANKLE FRACTURE [None]
  - BARRETT'S OESOPHAGUS [None]
  - DENTAL CARIES [None]
  - ABDOMINAL PAIN UPPER [None]
  - ULCER [None]
  - TOOTH FRACTURE [None]
  - HAEMORRHOIDS [None]
  - RECTAL POLYP [None]
  - GINGIVITIS [None]
  - OSTEONECROSIS OF JAW [None]
  - MIGRAINE [None]
  - WRIST FRACTURE [None]
  - GASTROOESOPHAGEAL REFLUX DISEASE [None]
  - JAW DISORDER [None]
  - GASTRITIS [None]
  - BEHCET'S SYNDROME [None]
  - OSTEOPENIA [None]
  - HIATUS HERNIA [None]
